FAERS Safety Report 25484080 (Version 1)
Quarter: 2025Q2

REPORT INFORMATION
  Report Type: Spontaneous
  Country: CN (occurrence: CN)
  Receive Date: 20250626
  Receipt Date: 20250626
  Transmission Date: 20250717
  Serious: Yes (Life-Threatening, Hospitalization)
  Sender: PURDUE
  Company Number: CN-NAPPMUNDI-GBR-2025-0126612

PATIENT
  Age: 60 Year
  Sex: Female
  Weight: 44 kg

DRUGS (1)
  1. OXYCODONE HYDROCHLORIDE [Suspect]
     Active Substance: OXYCODONE HYDROCHLORIDE
     Indication: Metastases to neck
     Dosage: 30 MILLIGRAM, BID
     Route: 048
     Dates: start: 20250527, end: 20250528

REACTIONS (4)
  - Depressed level of consciousness [Recovering/Resolving]
  - Hyperhidrosis [Unknown]
  - Pupillary reflex impaired [Unknown]
  - Hyperglycaemia [Unknown]

NARRATIVE: CASE EVENT DATE: 20250101
